FAERS Safety Report 9379463 (Version 4)
Quarter: 2014Q1

REPORT INFORMATION
  Report Type: Spontaneous
  Country: BR (occurrence: BR)
  Receive Date: 20130702
  Receipt Date: 20140205
  Transmission Date: 20141002
  Serious: Yes (Other)
  Sender: FDA-Public Use
  Company Number: BR-AMGEN-BRASP2012019914

PATIENT
  Age: 54 Year
  Sex: Female
  Weight: 60 kg

DRUGS (7)
  1. ENBREL [Suspect]
     Indication: PSORIASIS
     Dosage: UNK
     Route: 065
     Dates: start: 2011
  2. ENBREL [Suspect]
     Dosage: 50 MG, QWK
     Route: 058
     Dates: start: 2012, end: 20130503
  3. ENBREL [Suspect]
     Dosage: 50 MG, 1X/WEEK
     Route: 058
     Dates: start: 20130602
  4. ALPRAZOLAM [Concomitant]
     Indication: SLEEP DISORDER
     Dosage: 1 TABLET (1 MG), 1X/DAY
     Route: 048
  5. FLUOXETINE [Concomitant]
     Indication: SMOKING CESSATION THERAPY
     Dosage: 20 MG, QD
     Route: 048
  6. FLUOXETINE [Concomitant]
     Indication: GENERAL PHYSICAL CONDITION ABNORMAL
  7. CITALOPRAM [Concomitant]
     Dosage: 20 MG A DAY

REACTIONS (9)
  - Dysphonia [Unknown]
  - Blood cholesterol increased [Unknown]
  - Injection site pain [Unknown]
  - Injection site urticaria [Not Recovered/Not Resolved]
  - Injection site induration [Not Recovered/Not Resolved]
  - Injection site swelling [Unknown]
  - Injection site hypersensitivity [Unknown]
  - Injection site erythema [Not Recovered/Not Resolved]
  - Injection site pruritus [Not Recovered/Not Resolved]
